FAERS Safety Report 9890453 (Version 1)
Quarter: 2014Q1

REPORT INFORMATION
  Report Type: Spontaneous
  Country: US (occurrence: None)
  Receive Date: 20140211
  Receipt Date: 20140211
  Transmission Date: 20141002
  Serious: Yes (Death)
  Sender: FDA-Public Use
  Company Number: None

PATIENT
  Age: 36 Year
  Sex: Male
  Weight: 56.8 kg

DRUGS (6)
  1. EXJADE 500MG NOVARTIS [Suspect]
     Indication: SICKLE CELL ANAEMIA
     Route: 048
     Dates: start: 20120523, end: 20140209
  2. PROAIR [Concomitant]
  3. BENADRYL [Concomitant]
  4. NEXIUM [Concomitant]
  5. ALBUTERON [Concomitant]
  6. MIDODRINE [Concomitant]

REACTIONS (1)
  - Pneumonia [None]
